FAERS Safety Report 4702092-9 (Version None)
Quarter: 2005Q2

REPORT INFORMATION
  Report Type: 
  Country: None (occurrence: None)
  Receive Date: 20050624
  Receipt Date: 20050325
  Transmission Date: 20051028
  Serious: No
  Sender: FDA-Public Use
  Company Number: 2005BI006717

PATIENT
  Sex: Female

DRUGS (6)
  1. NATALIZUMAB [Suspect]
     Indication: MULTIPLE SCLEROSIS
     Dosage: UNKNOWN;IV
     Route: 042
  2. AVONEX [Suspect]
     Indication: MULTIPLE SCLEROSIS
     Dosage: 30 UG;QW;IM
     Route: 030
     Dates: start: 20040417
  3. NEURONTIN [Concomitant]
  4. A SLEEP AID [Concomitant]
  5. ANTI-DEPRESSANT [Concomitant]
  6. MEDICATIONS (NOS) [Concomitant]

REACTIONS (4)
  - DRUG INTOLERANCE [None]
  - INFLUENZA LIKE ILLNESS [None]
  - PSYCHOTIC DISORDER [None]
  - STRESS [None]
